FAERS Safety Report 7457221-3 (Version None)
Quarter: 2011Q2

REPORT INFORMATION
  Report Type: 
  Country: None (occurrence: None)
  Receive Date: 20110504
  Receipt Date: 20110502
  Transmission Date: 20111010
  Serious: Yes (Other)
  Sender: FDA-Public Use
  Company Number: US-PFIZER INC-2011020801

PATIENT
  Sex: Female

DRUGS (4)
  1. ATIVAN [Concomitant]
     Indication: ANXIETY
  2. CHANTIX [Suspect]
     Indication: SMOKING CESSATION THERAPY
     Dosage: STARTER PACK AND CONTINUING MONTHLY PACK ON EACH OCCASION
     Dates: start: 20090416, end: 20090601
  3. ATIVAN [Concomitant]
     Indication: DEPRESSION
     Dosage: UNK
     Dates: start: 20080101, end: 20100101
  4. ZOLOFT [Concomitant]
     Indication: DEPRESSION
     Dosage: UNK
     Dates: start: 20070101, end: 20100101

REACTIONS (2)
  - ANXIETY [None]
  - DEPRESSION [None]
